FAERS Safety Report 10651208 (Version 2)
Quarter: 2014Q4

REPORT INFORMATION
  Report Type: Report from Study
  Country: US (occurrence: US)
  Receive Date: 20141215
  Receipt Date: 20141231
  Transmission Date: 20150529
  Serious: Yes (Death, Hospitalization)
  Sender: FDA-Public Use
  Company Number: US-009507513-1411USA005789

PATIENT
  Age: 60 Year
  Sex: Male
  Weight: 85.4 kg

DRUGS (17)
  1. PEMBROLIZUMAB. [Suspect]
     Active Substance: PEMBROLIZUMAB
     Indication: NON-SMALL CELL LUNG CANCER
     Dosage: 2 MG/KG, Q3W
     Route: 042
     Dates: start: 20141008, end: 20141008
  2. ANDROGEL [Concomitant]
     Active Substance: TESTOSTERONE
     Indication: BLOOD TESTOSTERONE DECREASED
     Dosage: 2.5 G, BID
     Route: 061
     Dates: start: 200401, end: 20141120
  3. WARFARIN [Concomitant]
     Active Substance: WARFARIN
     Indication: DEEP VEIN THROMBOSIS
     Dosage: 5 MG, ONCE, FORMULATION: PILL
     Route: 048
     Dates: start: 20141019, end: 20141120
  4. FENTANYL. [Concomitant]
     Active Substance: FENTANYL
     Indication: PAIN
     Dosage: TOTAL DAILY DOSE: 1600 MICROGRAM, PRN, FORMULATION: PILL
     Route: 048
     Dates: start: 199901, end: 20141120
  5. XANAX [Concomitant]
     Active Substance: ALPRAZOLAM
     Indication: INSOMNIA
     Dosage: TOTAL DAILY DOSE: 1 MG, FREQUENCY: OTHER, FORMULATION: PILL
     Route: 048
     Dates: start: 201301, end: 20141120
  6. AMBIEN [Concomitant]
     Active Substance: ZOLPIDEM TARTRATE
     Indication: INSOMNIA
     Dosage: TOTAL DAILY DOSE: 10 MG, FREQUENCY: OTHER, FORMULATION: PILL
     Route: 048
     Dates: start: 200401, end: 20141120
  7. XARELTO [Concomitant]
     Active Substance: RIVAROXABAN
     Indication: DEEP VEIN THROMBOSIS
     Dosage: 7.5 MG, BID, FORMULATION: PILL
     Route: 048
     Dates: start: 20140920, end: 20141120
  8. OMEGA-3 MARINE TRIGLYCERIDES [Concomitant]
     Active Substance: FISH OIL
     Indication: ROUTINE HEALTH MAINTENANCE
     Dosage: 1200 MG, QD, FORMULATION: PILL
     Route: 048
     Dates: start: 201201, end: 20141120
  9. PROVIGIL [Concomitant]
     Active Substance: MODAFINIL
     Indication: NARCOLEPSY
     Dosage: 200 MG, QD, FORMULATION: PILL
     Route: 048
     Dates: start: 199901, end: 20141120
  10. CALCIUM (UNSPECIFIED) [Concomitant]
     Active Substance: CALCIUM
     Indication: ROUTINE HEALTH MAINTENANCE
     Dosage: 600 MG, QD, FORMULATION: PILL
     Route: 048
     Dates: start: 201201, end: 20141120
  11. PEMBROLIZUMAB. [Suspect]
     Active Substance: PEMBROLIZUMAB
     Dosage: 2 MG/KG, Q3W
     Route: 042
     Dates: start: 20141029, end: 20141029
  12. BUPROPION HYDROCHLORIDE. [Concomitant]
     Active Substance: BUPROPION HYDROCHLORIDE
     Indication: ANXIETY
     Dosage: 30 MG, QD, FORMULATION: PILL
     Route: 048
     Dates: start: 199901, end: 20141120
  13. REMERON [Concomitant]
     Active Substance: MIRTAZAPINE
     Indication: INSOMNIA
     Dosage: TOTAL DAILY DOSE: 45 MG, FREQUENCY: OTHER, FORMULATION: PILL
     Route: 048
     Dates: start: 200401, end: 20141120
  14. VITAMIN D [Concomitant]
     Active Substance: CHOLECALCIFEROL
     Indication: ROUTINE HEALTH MAINTENANCE
     Dosage: 5000 IU, QD, FORMULATION: PILL
     Route: 048
     Dates: start: 201201, end: 20141120
  15. METHADONE HYDROCHLORIDE. [Concomitant]
     Active Substance: METHADONE HYDROCHLORIDE
     Indication: PAIN
     Dosage: 10 MG, TID, FORMULATION: PILL
     Route: 048
     Dates: start: 199901, end: 20141120
  16. GABAPENTIN. [Concomitant]
     Active Substance: GABAPENTIN
     Indication: NEURALGIA
     Dosage: 1200 MG, QD, FORMULATION: PILL
     Route: 048
     Dates: start: 199901, end: 20141120
  17. CENTRUM SILVER [Concomitant]
     Active Substance: VITAMINS
     Indication: ROUTINE HEALTH MAINTENANCE
     Dosage: 1 TABLET, QD
     Route: 048
     Dates: start: 201201, end: 20141120

REACTIONS (1)
  - Cardiac arrest [Fatal]

NARRATIVE: CASE EVENT DATE: 20141106
